FAERS Safety Report 6900556-0 (Version None)
Quarter: 2010Q3

REPORT INFORMATION
  Report Type: 
  Country: None (occurrence: None)
  Receive Date: 20100803
  Receipt Date: 20100728
  Transmission Date: 20110219
  Serious: Yes (Other)
  Sender: FDA-Public Use
  Company Number: JP-PFIZER INC-2010094894

PATIENT
  Sex: Male

DRUGS (1)
  1. MEDROL [Suspect]
     Dosage: 1 MG/DAY
     Route: 048

REACTIONS (1)
  - NEPHROPATHY TOXIC [None]
